FAERS Safety Report 10178044 (Version 1)
Quarter: 2014Q2

REPORT INFORMATION
  Report Type: Spontaneous
  Country: US (occurrence: US)
  Receive Date: 20140518
  Receipt Date: 20140518
  Transmission Date: 20141212
  Serious: No
  Sender: FDA-Public Use
  Company Number: US-009507513-1405USA005986

PATIENT
  Sex: Female

DRUGS (1)
  1. COPPERTONE SPORT LOTION SPF 15 [Suspect]
     Indication: PRODUCT USED FOR UNKNOWN INDICATION
     Dosage: UNK UNK, UNKNOWN
     Route: 061

REACTIONS (2)
  - Circumstance or information capable of leading to medication error [Unknown]
  - Product expiration date issue [Unknown]
